FAERS Safety Report 8018029-3 (Version None)
Quarter: 2012Q1

REPORT INFORMATION
  Report Type: 
  Country: None (occurrence: None)
  Receive Date: 20120103
  Receipt Date: 20111229
  Transmission Date: 20120608
  Serious: Yes (Other)
  Sender: FDA-Public Use
  Company Number: ES-JNJFOC-20110906549

PATIENT
  Sex: Male
  Weight: 76 kg

DRUGS (2)
  1. RISPERDAL CONSTA [Suspect]
     Indication: SCHIZOPHRENIA
     Route: 030
     Dates: start: 20110901
  2. RISPERIDONE [Suspect]
     Indication: SCHIZOPHRENIA
     Dosage: INITIATED ABOUT TWO AND HALF MONTHS AGO
     Route: 048

REACTIONS (3)
  - CEREBRAL ARTERIOSCLEROSIS [None]
  - INJURY [None]
  - INJECTION SITE PAIN [None]
